FAERS Safety Report 12312914 (Version 1)
Quarter: 2016Q2

REPORT INFORMATION
  Report Type: Spontaneous
  Country: US (occurrence: None)
  Receive Date: 20160427
  Receipt Date: 20160427
  Transmission Date: 20160815
  Serious: Yes (Other)
  Sender: FDA-Public Use
  Company Number: None

PATIENT
  Age: 60 Year
  Sex: Female
  Weight: 72.58 kg

DRUGS (6)
  1. ESZOPICLONE, 2 MG [Suspect]
     Active Substance: ESZOPICLONE
     Indication: SLEEP DISORDER
     Route: 048
     Dates: start: 20160414, end: 20160423
  2. CALCIUM PLUS VITAMIN D3 [Concomitant]
  3. MULTIVITAMIN [Concomitant]
     Active Substance: VITAMINS
  4. MYSOLINE [Concomitant]
     Active Substance: PRIMIDONE
  5. NEURONTIN [Concomitant]
     Active Substance: GABAPENTIN
  6. ATENTOL [Concomitant]

REACTIONS (4)
  - Hallucination, visual [None]
  - Vertigo [None]
  - Dizziness [None]
  - Fall [None]

NARRATIVE: CASE EVENT DATE: 20160422
